FAERS Safety Report 5590175-3 (Version None)
Quarter: 2008Q1

REPORT INFORMATION
  Report Type: 
  Country: None (occurrence: None)
  Receive Date: 20080114
  Receipt Date: 20080110
  Transmission Date: 20080703
  Serious: Yes (Death)
  Sender: FDA-Public Use
  Company Number: US-ASTRAZENECA-2008AC00065

PATIENT
  Age: 41 Year
  Sex: Male

DRUGS (3)
  1. QUETIAPINE [Suspect]
     Route: 048
  2. VENLAFAXINE EXTENDED RELEASE [Suspect]
     Route: 048
  3. ETHANOL, BEVERAGE [Suspect]
     Route: 048

REACTIONS (7)
  - CEREBRAL HAEMORRHAGE [None]
  - COMPLETED SUICIDE [None]
  - CONVULSION [None]
  - HEAD INJURY [None]
  - LETHARGY [None]
  - MENTAL STATUS CHANGES [None]
  - SKULL FRACTURE [None]
